FAERS Safety Report 7632023-3 (Version None)
Quarter: 2011Q3

REPORT INFORMATION
  Report Type: 
  Country: None (occurrence: None)
  Receive Date: 20110725
  Receipt Date: 20100610
  Transmission Date: 20111222
  Serious: Yes (Other)
  Sender: FDA-Public Use
  Company Number: US-BRISTOL-MYERS SQUIBB COMPANY-15054372

PATIENT
  Age: 87 Year
  Sex: Female
  Weight: 79 kg

DRUGS (6)
  1. ALBUTEROL SULFATE AUTOHALER [Concomitant]
  2. FISH OIL [Concomitant]
  3. MULTI-VITAMINS [Concomitant]
  4. COUMADIN [Suspect]
     Indication: PULMONARY EMBOLISM
     Dosage: 5MG FIVE DAYS A WEEK ALTERNATING WITH 6.25MG TWO DAYS A WEEK
  5. COUMADIN [Suspect]
     Indication: VENOUS THROMBOSIS
     Dosage: 5MG FIVE DAYS A WEEK ALTERNATING WITH 6.25MG TWO DAYS A WEEK
  6. VITAMIN D [Concomitant]

REACTIONS (1)
  - INTERNATIONAL NORMALISED RATIO DECREASED [None]
